FAERS Safety Report 8398650-3 (Version None)
Quarter: 2012Q1

REPORT INFORMATION
  Report Type: 
  Country: None (occurrence: None)
  Receive Date: 20120323
  Receipt Date: 20111201
  Transmission Date: 20120608
  Serious: Yes (Other)
  Sender: FDA-Public Use
  Company Number: 163-21880-11120315

PATIENT
  Age: 63 Year
  Sex: Male

DRUGS (8)
  1. REVLIMID [Suspect]
     Indication: AMYLOIDOSIS
     Dosage: 10 MG, DAILY X 21D/28D, PO
     Route: 048
     Dates: start: 20110701
  2. TEMAZEPAM [Concomitant]
  3. POTASSIUM CHLORIDE [Concomitant]
  4. DEXAMETHASONE [Concomitant]
  5. VARDENAFIL (VARDENAFIL) [Concomitant]
  6. TERAZOSIN HCL [Concomitant]
  7. FUROSEMIDE [Concomitant]
  8. LAMOTRIGINE [Concomitant]

REACTIONS (2)
  - DYSGEUSIA [None]
  - STOMATITIS [None]
